FAERS Safety Report 5037046-9 (Version None)
Quarter: 2006Q2

REPORT INFORMATION
  Report Type: 
  Country: None (occurrence: None)
  Receive Date: 20060623
  Receipt Date: 20060608
  Transmission Date: 20061013
  Serious: Yes (Other)
  Sender: FDA-Public Use
  Company Number: 2006073764

PATIENT
  Age: 16 Year
  Sex: Female

DRUGS (4)
  1. CLINDAMYCIN HCL [Suspect]
     Indication: ANTIBIOTIC PROPHYLAXIS
     Dosage: 450 MG (150 MG, 3 IN 1 D), ORAL
     Route: 048
  2. CEFTRIAXONE [Concomitant]
  3. SULBACTAM (SULBACTAM) [Concomitant]
  4. B COMPLEX (NICOTINAMIDE, PYRIDOXINE HYDROCHLORIDE, RIBOFLAVIN, THIAMIN [Concomitant]

REACTIONS (1)
  - TREMOR [None]
